FAERS Safety Report 7211201-1 (Version None)
Quarter: 2011Q1

REPORT INFORMATION
  Report Type: 
  Country: None (occurrence: None)
  Receive Date: 20110105
  Receipt Date: 20101227
  Transmission Date: 20110831
  Serious: Yes (Hospitalization)
  Sender: FDA-Public Use
  Company Number: JP-JNJFOC-20101004757

PATIENT
  Age: 12 Year
  Sex: Male
  Weight: 40.95 kg

DRUGS (17)
  1. REMICADE [Suspect]
     Route: 042
  2. REMICADE [Suspect]
     Route: 042
  3. REMICADE [Suspect]
     Route: 042
  4. BIOFERMIN [Concomitant]
     Indication: CROHN'S DISEASE
  5. REMICADE [Suspect]
     Indication: CROHN'S DISEASE
     Route: 042
  6. AZATHIOPRINE [Concomitant]
     Indication: CROHN'S DISEASE
  7. TACROLIMUS [Concomitant]
     Indication: CROHN'S DISEASE
  8. TPN [Concomitant]
  9. REMICADE [Suspect]
     Route: 042
  10. FERROUS CITRATE [Concomitant]
     Indication: IRON DEFICIENCY ANAEMIA
     Route: 048
  11. TAKEPRON [Concomitant]
     Indication: CROHN'S DISEASE
     Route: 048
  12. REMICADE [Suspect]
     Route: 042
  13. REMICADE [Suspect]
     Route: 042
  14. REMICADE [Suspect]
     Route: 042
  15. REMICADE [Suspect]
     Route: 042
  16. SALAZOPYRIN [Concomitant]
     Indication: CROHN'S DISEASE
     Route: 048
  17. PROGRAF [Concomitant]
     Indication: CROHN'S DISEASE
     Route: 048

REACTIONS (5)
  - VOMITING [None]
  - TYPE IV HYPERSENSITIVITY REACTION [None]
  - PYREXIA [None]
  - CROHN'S DISEASE [None]
  - DIARRHOEA [None]
